FAERS Safety Report 24409279 (Version 2)
Quarter: 2024Q4

REPORT INFORMATION
  Report Type: Spontaneous
  Country: US (occurrence: US)
  Receive Date: 20241008
  Receipt Date: 20241111
  Transmission Date: 20250114
  Serious: Yes (Other)
  Sender: AUROBINDO
  Company Number: US-AUROBINDO-AUR-APL-2024-044539

PATIENT
  Sex: Female

DRUGS (8)
  1. BUPROPION [Suspect]
     Active Substance: BUPROPION
     Indication: Depression
     Dosage: 150 MILLIGRAM, DAILY (3 WEEKS PRIOR)
     Route: 065
  2. BUPROPION [Suspect]
     Active Substance: BUPROPION
     Indication: Anxiety
  3. VALACYCLOVIR HYDROCHLORIDE [Suspect]
     Active Substance: VALACYCLOVIR HYDROCHLORIDE
     Indication: Disseminated varicella zoster vaccine virus infection
     Dosage: 1000 MILLIGRAM, TWO TIMES A DAY
     Route: 048
  4. VALACYCLOVIR HYDROCHLORIDE [Suspect]
     Active Substance: VALACYCLOVIR HYDROCHLORIDE
     Dosage: 500 MILLIGRAM, DAILY
     Route: 048
  5. APIXABAN [Concomitant]
     Active Substance: APIXABAN
     Indication: Pulmonary embolism
     Dosage: 5 MILLIGRAM, TWO TIMES A DAY
     Route: 065
  6. PANTOPRAZOLE [Concomitant]
     Active Substance: PANTOPRAZOLE
     Indication: Gastrooesophageal reflux disease
     Dosage: 40 MILLIGRAM, DAILY
     Route: 065
  7. REMDESIVIR [Concomitant]
     Active Substance: REMDESIVIR
     Indication: COVID-19
     Dosage: UNK
     Route: 065
  8. PREDNISONE [Concomitant]
     Active Substance: PREDNISONE
     Indication: COVID-19
     Dosage: 12.5 MILLIGRAM, DAILY
     Route: 065

REACTIONS (4)
  - Acute generalised exanthematous pustulosis [Unknown]
  - Stevens-Johnson syndrome [Unknown]
  - Drug ineffective [Unknown]
  - Skin lesion [Unknown]
